FAERS Safety Report 23665801 (Version 1)
Quarter: 2024Q1

REPORT INFORMATION
  Report Type: Report from Study
  Country: US (occurrence: US)
  Receive Date: 20240323
  Receipt Date: 20240323
  Transmission Date: 20240410
  Serious: No
  Sender: FDA-Public Use
  Company Number: US-ABBVIE-2310537US

PATIENT
  Sex: Female
  Weight: 61 kg

DRUGS (2)
  1. LUMIGAN [Suspect]
     Active Substance: BIMATOPROST
     Indication: Product used for unknown indication
     Dosage: ONE DROP EACH EYES, 0.3MG/ML SOL
     Route: 047
  2. ALPHAGAN P [Concomitant]
     Active Substance: BRIMONIDINE TARTRATE
     Indication: Product used for unknown indication
     Dosage: 1 GTT BID

REACTIONS (4)
  - Intraocular pressure increased [Unknown]
  - Optic disc disorder [Unknown]
  - Angle closure glaucoma [Unknown]
  - Visual field defect [Unknown]
